FAERS Safety Report 12101398 (Version 1)
Quarter: 2016Q1

REPORT INFORMATION
  Report Type: Spontaneous
  Country: JP (occurrence: JP)
  Receive Date: 20160222
  Receipt Date: 20160222
  Transmission Date: 20160526
  Serious: Yes (Disabling, Other)
  Sender: FDA-Public Use
  Company Number: JP-DSJP-DSJ-2016-106215

PATIENT

DRUGS (6)
  1. AMLODIN [Suspect]
     Active Substance: AMLODIPINE BESYLATE
     Indication: HYPERTENSION
     Dosage: 5MG/DAY
     Route: 048
     Dates: start: 20040531
  2. TALION                             /01587402/ [Concomitant]
     Active Substance: BEPOTASTINE
     Dosage: UNK
     Route: 065
     Dates: start: 20080318
  3. OLMETEC [Suspect]
     Active Substance: OLMESARTAN MEDOXOMIL
     Indication: HYPERTENSION
     Dosage: 10MG/?
     Route: 048
     Dates: start: 20040531
  4. AMLODIN [Suspect]
     Active Substance: AMLODIPINE BESYLATE
     Dosage: 2.5MG/?
     Route: 048
     Dates: start: 20140331, end: 20160113
  5. OLMETEC [Suspect]
     Active Substance: OLMESARTAN MEDOXOMIL
     Dosage: 20MG/?
     Route: 048
     Dates: start: 20140313, end: 20160113
  6. LOTRIGA [Concomitant]
     Active Substance: OMEGA-3-ACID ETHYL ESTERS
     Dosage: UNK
     Route: 065
     Dates: start: 20140603

REACTIONS (1)
  - Pain in extremity [Recovering/Resolving]

NARRATIVE: CASE EVENT DATE: 201510
